FAERS Safety Report 4284979-7 (Version None)
Quarter: 2004Q1

REPORT INFORMATION
  Report Type: 
  Country: None (occurrence: None)
  Receive Date: 20040202
  Receipt Date: 20040128
  Transmission Date: 20041129
  Serious: Yes (Other)
  Sender: FDA-Public Use
  Company Number: 2003-10-2176

PATIENT
  Age: 38 Year
  Sex: Female

DRUGS (8)
  1. CLARINEX [Suspect]
     Indication: RHINITIS ALLERGIC
     Dosage: 1-2 TABLETS* ORAL
     Route: 048
     Dates: start: 20030401
  2. CLARINEX [Suspect]
     Indication: RHINITIS ALLERGIC
     Dosage: 1-2 TABLETS* ORAL
     Route: 048
     Dates: start: 20030704
  3. NASONEX [Concomitant]
  4. VENTOLIN [Concomitant]
  5. MINOCYCLINE HCL [Concomitant]
  6. ANTIBIOTIC [Concomitant]
  7. STEROIDS [Concomitant]
  8. ADVAIR (SALMETEROL/FLUTICASONE) [Concomitant]

REACTIONS (2)
  - AMNESIA [None]
  - FATIGUE [None]
